FAERS Safety Report 9774294 (Version 1)
Quarter: 2013Q4

REPORT INFORMATION
  Report Type: Spontaneous
  Country: US (occurrence: US)
  Receive Date: 20131220
  Receipt Date: 20131220
  Transmission Date: 20140711
  Serious: Yes (Other)
  Sender: FDA-Public Use
  Company Number: US-ASTRAZENECA-2013SE91085

PATIENT
  Age: 76 Year
  Sex: Female

DRUGS (4)
  1. CRESTOR [Suspect]
     Indication: BLOOD CHOLESTEROL INCREASED
     Route: 048
     Dates: start: 2009, end: 2012
  2. GAS-X [Suspect]
     Indication: FLATULENCE
     Route: 065
  3. GAS-X [Suspect]
     Indication: FLATULENCE
     Route: 048
  4. LIVALO [Concomitant]
     Indication: BLOOD CHOLESTEROL INCREASED
     Route: 065
     Dates: start: 201307, end: 201308

REACTIONS (6)
  - Back pain [Recovered/Resolved]
  - Blood cholesterol increased [Unknown]
  - Gait disturbance [Recovered/Resolved]
  - Fall [Unknown]
  - Drug intolerance [Unknown]
  - Therapy cessation [Unknown]
